FAERS Safety Report 18955450 (Version 2)
Quarter: 2022Q2

REPORT INFORMATION
  Report Type: Spontaneous
  Country: JP (occurrence: None)
  Receive Date: 20210301
  Receipt Date: 20220418
  Transmission Date: 20220720
  Serious: Yes (Life-Threatening)
  Sender: FDA-Public Use
  Company Number: 2021A088106

PATIENT
  Age: 72 Year
  Sex: Male

DRUGS (3)
  1. IMFINZI [Suspect]
     Active Substance: DURVALUMAB
     Indication: Small cell lung cancer
     Route: 041
     Dates: start: 202011
  2. CARBOPLATIN [Concomitant]
     Active Substance: CARBOPLATIN
     Indication: Small cell lung cancer
     Dosage: AUC4
     Route: 065
     Dates: start: 202011
  3. ETOPOSIDE [Concomitant]
     Active Substance: ETOPOSIDE
     Indication: Small cell lung cancer
     Dosage: 70, MG/M2, DAY 1, 2, AND 3 OF EACH CYCLE
     Route: 065
     Dates: start: 202011

REACTIONS (2)
  - Neutrophil count decreased [Unknown]
  - Malaise [Unknown]
